FAERS Safety Report 25611096 (Version 2)
Quarter: 2025Q3

REPORT INFORMATION
  Report Type: Report from Study
  Country: US (occurrence: US)
  Receive Date: 20250728
  Receipt Date: 20250929
  Transmission Date: 20251021
  Serious: Yes (Other)
  Sender: UCB
  Company Number: US-UCBSA-2025041343

PATIENT
  Sex: Female

DRUGS (5)
  1. LACOSAMIDE [Suspect]
     Active Substance: LACOSAMIDE
     Indication: Epilepsy
     Dosage: 100 MILLIGRAM, 2X/DAY (BID)
  2. LACOSAMIDE [Suspect]
     Active Substance: LACOSAMIDE
     Dosage: 200 MILLIGRAM, 2X/DAY (BID)
  3. KEPPRA XR [Suspect]
     Active Substance: LEVETIRACETAM
     Indication: Epilepsy
     Dosage: 2000 MILLIGRAM, ONCE DAILY (QD)
  4. KEPPRA XR [Suspect]
     Active Substance: LEVETIRACETAM
     Dosage: 2000 MILLIGRAM, ONCE DAILY (QD) 500 MILLIGRAMS, 4 TABLETS PM
  5. BIMEKIZUMAB [Concomitant]
     Active Substance: BIMEKIZUMAB
     Indication: Product used for unknown indication

REACTIONS (6)
  - Hernia [Recovering/Resolving]
  - Hernia repair [Recovering/Resolving]
  - Hypertension [Unknown]
  - Post procedural discomfort [Recovering/Resolving]
  - Product availability issue [Unknown]
  - Therapy interrupted [Unknown]

NARRATIVE: CASE EVENT DATE: 20250101
